FAERS Safety Report 25231983 (Version 2)
Quarter: 2025Q3

REPORT INFORMATION
  Report Type: Spontaneous
  Country: US (occurrence: US)
  Receive Date: 20250423
  Receipt Date: 20250709
  Transmission Date: 20251021
  Serious: No
  Sender: MERCK SHARP & DOHME LLC
  Company Number: US-009507513-2278406

PATIENT
  Sex: Female
  Weight: 126.5 kg

DRUGS (19)
  1. WINREVAIR [Suspect]
     Active Substance: SOTATERCEPT-CSRK
     Indication: Product used for unknown indication
     Route: 065
  2. WINREVAIR [Suspect]
     Active Substance: SOTATERCEPT-CSRK
     Dates: start: 2025
  3. WINREVAIR [Suspect]
     Active Substance: SOTATERCEPT-CSRK
  4. WINREVAIR [Suspect]
     Active Substance: SOTATERCEPT-CSRK
  5. TYVASO DPI [Suspect]
     Active Substance: TREPROSTINIL
     Indication: Pulmonary hypertension
     Dosage: 64 UG, EVERY 4 DAYS
     Route: 055
     Dates: start: 20231114
  6. METOPROLOL TARTRATE [Concomitant]
     Active Substance: METOPROLOL TARTRATE
  7. IBUPROFEN [Concomitant]
     Active Substance: IBUPROFEN
  8. OXYGEN [Concomitant]
     Active Substance: OXYGEN
  9. POTASSIUM CHLORIDE [Concomitant]
     Active Substance: POTASSIUM CHLORIDE
  10. LASIX [Concomitant]
     Active Substance: FUROSEMIDE
  11. TADALAFIL [Concomitant]
     Active Substance: TADALAFIL
  12. PRADAXA [Concomitant]
     Active Substance: DABIGATRAN ETEXILATE MESYLATE
  13. ALBUTEROL SULFATE [Concomitant]
     Active Substance: ALBUTEROL SULFATE
  14. VITAMINS [Concomitant]
     Active Substance: VITAMINS
  15. ALVESCO [Concomitant]
     Active Substance: CICLESONIDE
  16. FERROUS SULFATE [Concomitant]
     Active Substance: FERROUS SULFATE
  17. BENZONATATE [Concomitant]
     Active Substance: BENZONATATE
  18. LOPERAMIDE [Concomitant]
     Active Substance: LOPERAMIDE
  19. ONDANSETRON HYDROCHLORIDE [Concomitant]
     Active Substance: ONDANSETRON HYDROCHLORIDE

REACTIONS (4)
  - Dyspnoea [Unknown]
  - Polycythaemia [Recovering/Resolving]
  - Inappropriate schedule of product administration [Unknown]
  - Abdominal distension [Unknown]

NARRATIVE: CASE EVENT DATE: 20250101
